FAERS Safety Report 8226753-2 (Version None)
Quarter: 2012Q1

REPORT INFORMATION
  Report Type: 
  Country: None (occurrence: None)
  Receive Date: 20120322
  Receipt Date: 20120314
  Transmission Date: 20120608
  Serious: Yes (Hospitalization)
  Sender: FDA-Public Use
  Company Number: US-BAYER-2011-105703

PATIENT
  Age: 22 Year
  Sex: Female
  Weight: 81.633 kg

DRUGS (4)
  1. PLAQUENIL [Concomitant]
     Indication: SYSTEMIC LUPUS ERYTHEMATOSUS
     Dosage: 200 MG DAILY
     Dates: start: 20030901
  2. DROSPIRENONE AND ETHINYL ESTRADIOL [Suspect]
     Dosage: UNK
     Route: 048
     Dates: start: 20061001, end: 20081201
  3. YASMIN [Suspect]
     Dosage: UNK
     Route: 048
     Dates: start: 20061001, end: 20081201
  4. PREDNISONE TAB [Concomitant]
     Indication: SYSTEMIC LUPUS ERYTHEMATOSUS
     Dosage: UNK
     Dates: start: 20030901

REACTIONS (12)
  - INJURY [None]
  - PULMONARY EMBOLISM [None]
  - FEAR [None]
  - DIZZINESS [None]
  - PAIN IN EXTREMITY [None]
  - DEPRESSION [None]
  - WEIGHT BEARING DIFFICULTY [None]
  - SUICIDAL IDEATION [None]
  - DYSPNOEA [None]
  - PAIN [None]
  - DEEP VEIN THROMBOSIS [None]
  - APHASIA [None]
